FAERS Safety Report 8450497-5 (Version None)
Quarter: 2012Q2

REPORT INFORMATION
  Report Type: 
  Country: None (occurrence: None)
  Receive Date: 20120613
  Receipt Date: 20120530
  Transmission Date: 20120825
  Serious: Yes (Hospitalization)
  Sender: FDA-Public Use
  Company Number: 2012AP001606

PATIENT
  Age: 64 Year
  Sex: Female

DRUGS (5)
  1. CLOPIDEGREL [Suspect]
     Indication: ANTIPLATELET THERAPY
     Dosage: 75 MG;UNKNOWN
  2. ROMIPLOSTIM (ROMIPLOSTIM) [Suspect]
     Indication: EPISTAXIS
     Dosage: UNKNOWN
  3. ROMIPLOSTIM (ROMIPLOSTIM) [Suspect]
     Indication: VAGINAL DISCHARGE
     Dosage: UNKNOWN
  4. EPTIFIBATIDE [Suspect]
     Indication: PRODUCT USED FOR UNKNOWN INDICATION
     Dosage: 10 MG; UNKNOWN;IVBOL;UNKNOWN
     Route: 040
  5. ASPIRIN [Suspect]
     Indication: ANTIPLATELET THERAPY
     Dosage: 100 MG; UNKNOWN 150 MG; UNKNOWN

REACTIONS (3)
  - ELECTROCARDIOGRAM ST SEGMENT ELEVATION [None]
  - CHEST PAIN [None]
  - THROMBOSIS IN DEVICE [None]
